FAERS Safety Report 8287551-7 (Version None)
Quarter: 2012Q2

REPORT INFORMATION
  Report Type: 
  Country: None (occurrence: None)
  Receive Date: 20120416
  Receipt Date: 20120402
  Transmission Date: 20120825
  Serious: No
  Sender: FDA-Public Use
  Company Number: PHHY2010US44736

PATIENT
  Sex: Female

DRUGS (10)
  1. TASIGNA [Suspect]
     Dosage: 150 MG, BID
     Route: 048
     Dates: start: 20110303
  2. NAPROXEN [Concomitant]
  3. SOMA [Concomitant]
  4. TASIGNA [Suspect]
     Indication: LYMPHOCYTIC LEUKAEMIA
     Dosage: 400 MG, BID
     Route: 048
     Dates: start: 20100227
  5. CLONAZEPAM [Concomitant]
  6. FLUTICASONE PROPIONATE [Concomitant]
  7. PROZAC [Concomitant]
  8. NAPROXEN (ALEVE) [Concomitant]
  9. VITAMINS WITH MINERALS [Concomitant]
  10. FLUOXETINE [Concomitant]

REACTIONS (3)
  - FATIGUE [None]
  - DIVERTICULUM [None]
  - HAEMATOCHEZIA [None]
